FAERS Safety Report 22166940 (Version 2)
Quarter: 2023Q2

REPORT INFORMATION
  Report Type: Spontaneous
  Country: DE (occurrence: DE)
  Receive Date: 20230403
  Receipt Date: 20230413
  Transmission Date: 20230721
  Serious: Yes (Other)
  Sender: FDA-Public Use
  Company Number: DE-ROCHE-3314053

PATIENT
  Sex: Female

DRUGS (13)
  1. LENALIDOMIDE [Suspect]
     Active Substance: LENALIDOMIDE
     Indication: Diffuse large B-cell lymphoma
     Dosage: 1N FOURTH LINE THE PATIENT WAS TREATED WITH
     Route: 065
     Dates: start: 20230101, end: 20230201
  2. BENDAMUSTINE HYDROCHLORIDE [Suspect]
     Active Substance: BENDAMUSTINE HYDROCHLORIDE
     Indication: Diffuse large B-cell lymphoma
     Dosage: IN SECOND LINE THE PATIENT WAS TREATED RITUXIMAB
     Route: 065
     Dates: start: 20220501, end: 20220601
  3. OXALIPLATIN [Suspect]
     Active Substance: OXALIPLATIN
     Indication: Diffuse large B-cell lymphoma
     Dosage: IN 5THLINE PATIENT WAS TREATED WITH GEMOX
     Route: 065
     Dates: start: 20230201, end: 20230308
  4. POLIVY [Suspect]
     Active Substance: POLATUZUMAB VEDOTIN-PIIQ
     Indication: Diffuse large B-cell lymphoma
     Dosage: IN 2ND LINE PATIENT WAS TREATED RITUXIMAB
     Route: 065
     Dates: start: 20220501, end: 20220601
  5. CYCLOPHOSPHAMIDE\DOXORUBICIN\PREDNISONE\VINCRISTINE [Suspect]
     Active Substance: CYCLOPHOSPHAMIDE\DOXORUBICIN\PREDNISONE\VINCRISTINE
     Indication: Diffuse large B-cell lymphoma
     Dosage: IN FIRST LINE THE PATIENT WAS TREATED WI
     Route: 065
     Dates: start: 20220201, end: 20220501
  6. TAFASITAMAB-CXIX [Suspect]
     Active Substance: TAFASITAMAB-CXIX
     Indication: Diffuse large B-cell lymphoma
     Dosage: IN FOURTH LINE THE PATIENT WAS TREATED WITH
     Route: 065
     Dates: start: 20230101, end: 20230201
  7. GEMCITABINE [Suspect]
     Active Substance: GEMCITABINE
     Indication: Diffuse large B-cell lymphoma
     Dosage: IN 5THLINE THE PATIENT WAS TREATED WITH GEMOX
     Route: 065
     Dates: start: 20230201, end: 20230308
  8. RITUXIMAB [Suspect]
     Active Substance: RITUXIMAB
     Indication: Diffuse large B-cell lymphoma
     Dosage: UNK, THE FIRST ADMINISTRATION WAS WITH RITUXIMAB
     Route: 065
     Dates: start: 20220201
  9. RITUXIMAB [Suspect]
     Active Substance: RITUXIMAB
     Dosage: UNK, THE FIRST ADMINISTRATION WAS WITH RITUXIMAB
     Route: 065
     Dates: start: 20220501
  10. PREDNISONE [Suspect]
     Active Substance: PREDNISONE
     Indication: Diffuse large B-cell lymphoma
     Dosage: UNK
     Route: 065
     Dates: start: 20220201, end: 20220501
  11. CYCLOPHOSPHAMIDE [Suspect]
     Active Substance: CYCLOPHOSPHAMIDE
     Indication: Diffuse large B-cell lymphoma
     Dosage: UNK
     Route: 065
     Dates: start: 20220201, end: 20220501
  12. VINCRISTINE [Suspect]
     Active Substance: VINCRISTINE
     Indication: Diffuse large B-cell lymphoma
     Dosage: UNK
     Route: 065
     Dates: start: 20220201, end: 20220501
  13. DOXORUBICIN HYDROCHLORIDE [Suspect]
     Active Substance: DOXORUBICIN HYDROCHLORIDE
     Indication: Diffuse large B-cell lymphoma
     Dosage: UNK
     Route: 065
     Dates: start: 20220201, end: 20220501

REACTIONS (1)
  - Lymphoma [Unknown]
